FAERS Safety Report 10189283 (Version 2)
Quarter: 2014Q2

REPORT INFORMATION
  Report Type: Report from Study
  Country: JP (occurrence: JP)
  Receive Date: 20140522
  Receipt Date: 20140522
  Transmission Date: 20141212
  Serious: Yes (Other)
  Sender: FDA-Public Use
  Company Number: JP-SHIONOGI, INC-2013000579

PATIENT
  Age: 81 Year
  Sex: Male

DRUGS (8)
  1. DORIPENEM [Suspect]
     Indication: PNEUMONIA
     Dosage: 0.5 G, QD
     Route: 041
     Dates: start: 20130331, end: 20130331
  2. DORIPENEM [Suspect]
     Dosage: 1 G, TID
     Route: 041
     Dates: start: 20130401, end: 20130416
  3. VANCOMYCIN HYDROCHLORIDE [Suspect]
     Indication: PNEUMONIA
     Dosage: DOSAGE FORM: UNSPECIFIED
     Route: 065
     Dates: start: 20130406, end: 20130411
  4. ELASPOL [Concomitant]
     Dosage: DOSAGE FORM: UNSPECIFIED
     Route: 065
     Dates: start: 20130401, end: 20130409
  5. DORMICUM                           /00036201/ [Concomitant]
     Dosage: DOSAGE FORM: UNSPECIFIED
     Route: 065
     Dates: start: 20130402, end: 20130404
  6. PRECEDEX [Concomitant]
     Dosage: DOSAGE FORM: UNSPECIFIED
     Route: 065
     Dates: start: 20130405, end: 20130408
  7. TAKEPRON [Concomitant]
     Indication: PROPHYLAXIS
     Dosage: DOSAGE FORM: UNSPECIFIED
     Route: 048
     Dates: start: 20130405, end: 20130416
  8. GASMOTIN [Concomitant]
     Indication: PROPHYLAXIS
     Dosage: DOSAGE FORM: UNSPECIFIED
     Route: 048
     Dates: start: 20130405, end: 20130416

REACTIONS (1)
  - Hepatic function abnormal [Unknown]
